FAERS Safety Report 19239376 (Version 1)
Quarter: 2021Q2

REPORT INFORMATION
  Report Type: Spontaneous
  Country: US (occurrence: US)
  Receive Date: 20210511
  Receipt Date: 20210511
  Transmission Date: 20210717
  Serious: Yes (Hospitalization)
  Sender: FDA-Public Use
  Company Number: US-CADILA HEALTHCARE LIMITED-US-ZYDUS-065305

PATIENT

DRUGS (1)
  1. BUPROPION. [Suspect]
     Active Substance: BUPROPION
     Indication: DEPRESSION
     Dosage: 150 MILLIGRAM 100 TABLETS
     Route: 048

REACTIONS (9)
  - Bundle branch block left [Recovering/Resolving]
  - Hypokinesia [Recovering/Resolving]
  - Electrocardiogram QRS complex prolonged [Recovering/Resolving]
  - Tachycardia [Recovering/Resolving]
  - Left ventricular dilatation [Recovering/Resolving]
  - Hallucination [Recovering/Resolving]
  - Cardiogenic shock [Recovering/Resolving]
  - Status epilepticus [Recovering/Resolving]
  - Cardiomyopathy [Recovering/Resolving]
